FAERS Safety Report 23941405 (Version 1)
Quarter: 2024Q2

REPORT INFORMATION
  Report Type: Spontaneous
  Country: US (occurrence: US)
  Receive Date: 20240605
  Receipt Date: 20240605
  Transmission Date: 20240715
  Serious: No
  Sender: FDA-Public Use
  Company Number: US-PFIZER INC-202400185381

PATIENT
  Age: 72 Year
  Sex: Male

DRUGS (4)
  1. DOCETAXEL [Suspect]
     Active Substance: DOCETAXEL\DOCETAXEL ANHYDROUS
     Indication: Prostate cancer stage IV
     Dosage: UNK
     Dates: start: 2021, end: 2022
  2. DOCETAXEL [Suspect]
     Active Substance: DOCETAXEL\DOCETAXEL ANHYDROUS
     Indication: Metastases to lymph nodes
  3. DOCETAXEL [Suspect]
     Active Substance: DOCETAXEL\DOCETAXEL ANHYDROUS
     Indication: Metastases to bone
  4. ABIRATERONE [Suspect]
     Active Substance: ABIRATERONE
     Dosage: UNK
     Dates: start: 2021, end: 2022

REACTIONS (1)
  - Toxicity to various agents [Unknown]
